FAERS Safety Report 7917937-9 (Version None)
Quarter: 2011Q4

REPORT INFORMATION
  Report Type: 
  Country: None (occurrence: None)
  Receive Date: 20111116
  Receipt Date: 20111108
  Transmission Date: 20120403
  Serious: Yes (Hospitalization, Other)
  Sender: FDA-Public Use
  Company Number: JP-JNJFOC-20111006618

PATIENT
  Sex: Female
  Weight: 49 kg

DRUGS (10)
  1. SEROQUEL [Concomitant]
     Route: 048
     Dates: start: 20110713
  2. SODIUM PICOSULFATE [Concomitant]
     Indication: CONSTIPATION
     Route: 048
     Dates: start: 20110901
  3. CEFAMEZIN ALPHA [Concomitant]
     Indication: PNEUMONIA
     Route: 042
     Dates: start: 20110831, end: 20110901
  4. RONFLEMAN [Concomitant]
     Route: 048
     Dates: start: 20110713
  5. ASPIRIN [Concomitant]
     Indication: CEREBRAL INFARCTION
     Route: 048
  6. BUP-4 [Concomitant]
     Indication: NEUROGENIC BLADDER
     Route: 048
  7. NORFLOXACIN [Concomitant]
     Indication: PNEUMONIA
     Route: 048
     Dates: start: 20110831, end: 20110906
  8. GALANTAMINE HYDROBROMIDE [Suspect]
     Indication: DEMENTIA ALZHEIMER'S TYPE
     Route: 048
     Dates: start: 20110601, end: 20110930
  9. NITRAZEPAM [Concomitant]
     Route: 048
     Dates: start: 20110817, end: 20110901
  10. MAGNESIUM SULFATE [Concomitant]
     Indication: CONSTIPATION
     Route: 048
     Dates: start: 20110907

REACTIONS (2)
  - TONIC CONVULSION [None]
  - LOSS OF CONSCIOUSNESS [None]
